FAERS Safety Report 18846490 (Version 1)
Quarter: 2021Q1

REPORT INFORMATION
  Report Type: Spontaneous
  Country: IT (occurrence: IT)
  Receive Date: 20210203
  Receipt Date: 20210203
  Transmission Date: 20210419
  Serious: Yes (Hospitalization)
  Sender: FDA-Public Use
  Company Number: IT-EXELIXIS-CABO-20031818

PATIENT
  Age: 60 Year
  Sex: Female
  Weight: 46 kg

DRUGS (1)
  1. COMETRIQ [Suspect]
     Active Substance: CABOZANTINIB S-MALATE
     Indication: MEDULLARY THYROID CANCER
     Route: 048
     Dates: start: 20200703, end: 20200726

REACTIONS (2)
  - Abdominal pain [Recovered/Resolved with Sequelae]
  - Diarrhoea [Recovered/Resolved with Sequelae]

NARRATIVE: CASE EVENT DATE: 20200724
